FAERS Safety Report 8113987-0 (Version None)
Quarter: 2012Q1

REPORT INFORMATION
  Report Type: 
  Country: None (occurrence: None)
  Receive Date: 20120203
  Receipt Date: 20120130
  Transmission Date: 20120608
  Serious: Yes (Hospitalization)
  Sender: FDA-Public Use
  Company Number: US-MERCK-1201USA04167

PATIENT
  Age: 52 Year
  Sex: Female
  Weight: 85 kg

DRUGS (11)
  1. LIPITOR [Concomitant]
     Route: 065
  2. GLIPIZIDE [Concomitant]
     Route: 065
  3. LANTUS [Concomitant]
     Route: 065
  4. LOVAZA [Concomitant]
     Route: 065
  5. ZETIA [Concomitant]
     Route: 065
  6. HUMALOG [Concomitant]
     Route: 065
  7. ASPIRIN [Concomitant]
     Route: 065
  8. TRILIPIX [Concomitant]
     Route: 065
  9. PRILOSEC [Concomitant]
     Route: 065
  10. JANUMET [Suspect]
     Indication: TYPE 2 DIABETES MELLITUS
     Route: 048
     Dates: end: 20120119
  11. DIOVAN [Concomitant]
     Route: 065

REACTIONS (2)
  - LIVER FUNCTION TEST ABNORMAL [None]
  - PANCREATITIS [None]
